FAERS Safety Report 13964009 (Version 3)
Quarter: 2018Q3

REPORT INFORMATION
  Report Type: Spontaneous
  Country: CA (occurrence: CA)
  Receive Date: 20170913
  Receipt Date: 20180720
  Transmission Date: 20181010
  Serious: Yes (Other)
  Sender: FDA-Public Use
  Company Number: CA-PFIZER INC-2017272684

PATIENT
  Age: 51 Year
  Sex: Female

DRUGS (5)
  1. XELJANZ [Suspect]
     Active Substance: TOFACITINIB CITRATE
     Dosage: 5 MG, 1X/DAY(OD)
     Route: 048
     Dates: start: 2018
  2. METHOTREXATE. [Concomitant]
     Active Substance: METHOTREXATE
     Indication: RHEUMATOID ARTHRITIS
     Dosage: UNK
  3. PREDNISONE. [Concomitant]
     Active Substance: PREDNISONE
     Dosage: UNK
     Dates: end: 201712
  4. XELJANZ [Suspect]
     Active Substance: TOFACITINIB CITRATE
     Indication: RHEUMATOID ARTHRITIS
     Dosage: 5 MG, 2X/DAY
     Route: 048
     Dates: start: 20170616, end: 201707
  5. XELJANZ [Suspect]
     Active Substance: TOFACITINIB CITRATE
     Dosage: 5 MG, 2X/DAY
     Route: 048
     Dates: start: 201708, end: 2018

REACTIONS (10)
  - Diabetes mellitus [Not Recovered/Not Resolved]
  - Intentional product misuse [Unknown]
  - Headache [Recovered/Resolved]
  - Nasopharyngitis [Recovering/Resolving]
  - Pain in jaw [Unknown]
  - Abdominal discomfort [Unknown]
  - Urticaria [Recovered/Resolved]
  - Lip swelling [Recovered/Resolved]
  - Fibromyalgia [Unknown]
  - Gastritis [Unknown]

NARRATIVE: CASE EVENT DATE: 2017
